FAERS Safety Report 5365171-1 (Version None)
Quarter: 2007Q2

REPORT INFORMATION
  Report Type: 
  Country: None (occurrence: None)
  Receive Date: 20070530
  Receipt Date: 20070124
  Transmission Date: 20071010
  Serious: No
  Sender: FDA-Public Use
  Company Number: 2007PV028936

PATIENT
  Age: 72 Year
  Sex: Female

DRUGS (6)
  1. BYETTA [Suspect]
     Indication: DIABETES MELLITUS NON-INSULIN-DEPENDENT
     Dosage: 10 MCG;BID;SC, 5 MCG;BID;SC
     Route: 058
     Dates: start: 20061001, end: 20060101
  2. BYETTA [Suspect]
     Indication: DIABETES MELLITUS NON-INSULIN-DEPENDENT
     Dosage: 10 MCG;BID;SC, 5 MCG;BID;SC
     Route: 058
     Dates: start: 20060101
  3. GLIPIZIDE [Suspect]
     Indication: DIABETES MELLITUS
     Dosage: 10 MG;QD;PO
     Route: 048
     Dates: end: 20060101
  4. AVANDARYL [Suspect]
     Indication: DIABETES MELLITUS
     Dosage: 4 MG
     Dates: start: 20060101
  5. HUMALOG [Concomitant]
  6. AVANDIA [Concomitant]

REACTIONS (5)
  - BLOOD GLUCOSE DECREASED [None]
  - BLOOD GLUCOSE INCREASED [None]
  - DIZZINESS [None]
  - FATIGUE [None]
  - TREMOR [None]
